FAERS Safety Report 5424249-4 (Version None)
Quarter: 2007Q3

REPORT INFORMATION
  Report Type: 
  Country: None (occurrence: None)
  Receive Date: 20070822
  Receipt Date: 20070808
  Transmission Date: 20080115
  Serious: Yes (Hospitalization)
  Sender: FDA-Public Use
  Company Number: 159737ISR

PATIENT
  Age: 29 Year
  Sex: Male

DRUGS (2)
  1. OXAZEPAM [Suspect]
  2. VENLAFAXINE HCL [Suspect]

REACTIONS (13)
  - AGITATION [None]
  - BLOOD CREATINE PHOSPHOKINASE INCREASED [None]
  - BLOOD PRESSURE INCREASED [None]
  - CLONUS [None]
  - DEPRESSED LEVEL OF CONSCIOUSNESS [None]
  - DRUG TOXICITY [None]
  - GLASGOW COMA SCALE ABNORMAL [None]
  - HYPOGLYCAEMIA [None]
  - INTENTIONAL OVERDOSE [None]
  - MULTIPLE DRUG OVERDOSE INTENTIONAL [None]
  - MYDRIASIS [None]
  - PNEUMONIA ASPIRATION [None]
  - SINUS TACHYCARDIA [None]
